FAERS Safety Report 9889591 (Version 1)
Quarter: 2014Q1

REPORT INFORMATION
  Report Type: Spontaneous
  Country: DE (occurrence: DE)
  Receive Date: 20140211
  Receipt Date: 20140211
  Transmission Date: 20141002
  Serious: Yes (Other)
  Sender: FDA-Public Use
  Company Number: DE-SA-2014SA014313

PATIENT
  Age: 53 Year
  Sex: Female
  Weight: 60.2 kg

DRUGS (2)
  1. AUBAGIO [Suspect]
     Indication: PRODUCT USED FOR UNKNOWN INDICATION
     Route: 048
  2. LAMOTRIGINE [Concomitant]
     Indication: EPILEPSY

REACTIONS (3)
  - Epilepsy [Unknown]
  - Diarrhoea [Unknown]
  - Nausea [Unknown]
